FAERS Safety Report 25717299 (Version 1)
Quarter: 2025Q3

REPORT INFORMATION
  Report Type: Spontaneous
  Country: EU (occurrence: EU)
  Receive Date: 20250822
  Receipt Date: 20250822
  Transmission Date: 20251020
  Serious: Yes (Hospitalization)
  Sender: ROCHE
  Company Number: EU-ROCHE-10000252592

PATIENT
  Age: 24 Year
  Sex: Female
  Weight: 121 kg

DRUGS (1)
  1. OCREVUS [Suspect]
     Active Substance: OCRELIZUMAB
     Indication: Multiple sclerosis
     Dosage: LAST DOSE OF OCRELIZUMAB WAS ON 29-JUL-2024.
     Route: 042
     Dates: start: 20230116

REACTIONS (5)
  - Maternal exposure before pregnancy [Unknown]
  - Toxoplasma serology positive [Unknown]
  - Pre-eclampsia [Unknown]
  - Premature delivery [Unknown]
  - Maternal exposure during pregnancy [Unknown]
